FAERS Safety Report 13553831 (Version 2)
Quarter: 2017Q2

REPORT INFORMATION
  Report Type: Spontaneous
  Country: US (occurrence: US)
  Receive Date: 20170517
  Receipt Date: 20170619
  Transmission Date: 20170830
  Serious: No
  Sender: FDA-Public Use
  Company Number: US-SHIRE-US201710871

PATIENT
  Age: 47 Year
  Sex: Female

DRUGS (2)
  1. ARTIFICIAL TEARS                   /00222401/ [Concomitant]
     Active Substance: PROPYLENE GLYCOL
     Indication: PRODUCT USED FOR UNKNOWN INDICATION
     Dosage: UNK, UNKNOWN
     Route: 047
  2. XIIDRA [Suspect]
     Active Substance: LIFITEGRAST
     Indication: DRY EYE
     Dosage: 1 GTT (EACH EYE), 2X/DAY:BID
     Route: 047
     Dates: start: 20170513

REACTIONS (12)
  - Instillation site inflammation [Unknown]
  - Instillation site lacrimation [Unknown]
  - Instillation site reaction [Recovered/Resolved]
  - Eye discharge [Unknown]
  - Instillation site pain [Unknown]
  - Instillation site pruritus [Unknown]
  - Headache [Recovered/Resolved]
  - Dysgeusia [Unknown]
  - Alopecia [Unknown]
  - Pain of skin [Unknown]
  - Accidental overdose [Unknown]
  - Feeling abnormal [Unknown]

NARRATIVE: CASE EVENT DATE: 20170522
